FAERS Safety Report 8152180-2 (Version None)
Quarter: 2012Q1

REPORT INFORMATION
  Report Type: 
  Country: None (occurrence: None)
  Receive Date: 20120215
  Receipt Date: 20120215
  Transmission Date: 20120608
  Serious: Yes (Hospitalization, Other)
  Sender: FDA-Public Use
  Company Number: None

PATIENT
  Age: 67 Year
  Sex: Male
  Weight: 101.2 kg

DRUGS (9)
  1. SUTENT [Suspect]
     Indication: RENAL CELL CARCINOMA
     Dosage: 50 MG (50 MG,1 IN 1 D),PER ORAL : 37.5 MG (37.5 MG,1 IN 1 D), PER ORAL : 37.5 MG (37.5 MG,1 IN 1 D),
     Route: 048
     Dates: start: 20120126, end: 20120131
  2. SUTENT [Suspect]
     Indication: RENAL CELL CARCINOMA
     Dosage: 50 MG (50 MG,1 IN 1 D),PER ORAL : 37.5 MG (37.5 MG,1 IN 1 D), PER ORAL : 37.5 MG (37.5 MG,1 IN 1 D),
     Route: 048
     Dates: start: 20111028, end: 20111227
  3. SUTENT [Suspect]
     Indication: RENAL CELL CARCINOMA
     Dosage: 50 MG (50 MG,1 IN 1 D),PER ORAL : 37.5 MG (37.5 MG,1 IN 1 D), PER ORAL : 37.5 MG (37.5 MG,1 IN 1 D),
     Route: 048
     Dates: start: 20110915, end: 20111013
  4. ZYRTEC [Concomitant]
  5. LOVENOX [Concomitant]
  6. HYDRALAZINE HCL [Concomitant]
  7. COUMADIN [Concomitant]
  8. LISINOPRIL [Concomitant]
  9. VITAMIN D [Concomitant]

REACTIONS (3)
  - SUBDURAL HAEMATOMA [None]
  - BRAIN MIDLINE SHIFT [None]
  - ACUTE SINUSITIS [None]
